FAERS Safety Report 18472504 (Version 1)
Quarter: 2020Q4

REPORT INFORMATION
  Report Type: Spontaneous
  Country: US (occurrence: US)
  Receive Date: 20201106
  Receipt Date: 20201106
  Transmission Date: 20210114
  Serious: Yes (Life-Threatening, Hospitalization, Other)
  Sender: FDA-Public Use
  Company Number: US-AUROBINDO-AUR-APL-2020-054180

PATIENT
  Age: 39 Year
  Sex: Male

DRUGS (2)
  1. ROPIVACAINE HYDROCHLORIDE INJECTION USP 0.5 % [Suspect]
     Active Substance: ROPIVACAINE HYDROCHLORIDE
     Indication: LOCAL ANAESTHESIA
  2. ROPIVACAINE HYDROCHLORIDE INJECTION USP 0.5 % [Suspect]
     Active Substance: ROPIVACAINE HYDROCHLORIDE
     Indication: NERVE BLOCK
     Dosage: 60 MILLILITER,1 TOTAL
     Route: 065

REACTIONS (6)
  - Sinus bradycardia [Recovered/Resolved]
  - Ventricular fibrillation [Recovered/Resolved]
  - Electrocardiogram QRS complex prolonged [Recovered/Resolved]
  - Local anaesthetic systemic toxicity [Recovered/Resolved]
  - Cardiac arrest [Recovered/Resolved]
  - Tonic clonic movements [Recovered/Resolved]
